FAERS Safety Report 14752075 (Version 1)
Quarter: 2018Q2

REPORT INFORMATION
  Report Type: Spontaneous
  Country: TR (occurrence: TR)
  Receive Date: 20180412
  Receipt Date: 20180412
  Transmission Date: 20180711
  Serious: Yes (Hospitalization)
  Sender: FDA-Public Use
  Company Number: TR-GLAXOSMITHKLINE-TR2018GSK057826

PATIENT
  Age: 47 Year
  Sex: Male

DRUGS (1)
  1. BUPROPION HCL [Suspect]
     Active Substance: BUPROPION HYDROCHLORIDE
     Indication: SMOKING CESSATION THERAPY
     Dosage: 150 MG THEN 300 MG

REACTIONS (3)
  - Hypersensitivity [Recovering/Resolving]
  - Eyelid oedema [Recovering/Resolving]
  - Skin lesion [Recovering/Resolving]
